FAERS Safety Report 4378705-0 (Version None)
Quarter: 2004Q2

REPORT INFORMATION
  Report Type: 
  Country: None (occurrence: None)
  Receive Date: 20040610
  Receipt Date: 20040607
  Transmission Date: 20050107
  Serious: Yes (Life-Threatening, Hospitalization)
  Sender: FDA-Public Use
  Company Number: FRWYE808007JUN04

PATIENT
  Sex: Female

DRUGS (3)
  1. EFFEXOR [Suspect]
     Dosage: 160 MG 1X PER 1 DAY
     Route: 048
     Dates: end: 20040604
  2. AVLOCARDYL (PROPANOLOL HYDROCHLORIDE, TABLET, 0) [Suspect]
     Indication: HYPERTENSION
  3. LAROXYL (AMITRIPTYLINE HYDROCHLORIDE, , 0) [Suspect]

REACTIONS (7)
  - BRADYCARDIA FOETAL [None]
  - CAESAREAN SECTION [None]
  - DRUG EXPOSURE DURING PREGNANCY [None]
  - DRUG WITHDRAWAL SYNDROME NEONATAL [None]
  - HYPOKINESIA NEONATAL [None]
  - NEONATAL RESPIRATORY FAILURE [None]
  - PREMATURE BABY [None]
